FAERS Safety Report 25311123 (Version 1)
Quarter: 2025Q2

REPORT INFORMATION
  Report Type: Report from Study
  Country: US (occurrence: US)
  Receive Date: 20250514
  Receipt Date: 20250514
  Transmission Date: 20250717
  Serious: No
  Sender: DR REDDYS
  Company Number: US-DRL-USA-USA/2025/05/006519

PATIENT
  Sex: Female
  Weight: 81.64 kg

DRUGS (1)
  1. JAVYGTOR [Suspect]
     Active Substance: SAPROPTERIN DIHYDROCHLORIDE
     Indication: Phenylketonuria
     Dosage: DISSOLVE 15 TABLETS IN 4 TO 8 OUNCE IN WATER OR APPLE JUICE AND DRINK MU MOUTH.
     Route: 048

REACTIONS (2)
  - Seasonal allergy [Unknown]
  - Eating disorder [Unknown]
